FAERS Safety Report 24813759 (Version 1)
Quarter: 2025Q1

REPORT INFORMATION
  Report Type: Spontaneous
  Country: US (occurrence: US)
  Receive Date: 20250107
  Receipt Date: 20250107
  Transmission Date: 20250408
  Serious: No
  Sender: AMGEN
  Company Number: US-AMGEN-USASP2024256951

PATIENT
  Age: 56 Year
  Sex: Female

DRUGS (4)
  1. ADALIMUMAB [Suspect]
     Active Substance: ADALIMUMAB
     Indication: Crohn^s disease
     Route: 065
  2. INFLIXIMAB [Suspect]
     Active Substance: INFLIXIMAB
     Indication: Crohn^s disease
     Route: 065
  3. RISANKIZUMAB-RZAA [Suspect]
     Active Substance: RISANKIZUMAB-RZAA
     Indication: Crohn^s disease
     Route: 040
  4. RISANKIZUMAB-RZAA [Suspect]
     Active Substance: RISANKIZUMAB-RZAA
     Route: 058

REACTIONS (7)
  - Therapeutic product effect incomplete [Unknown]
  - Abdominal discomfort [Recovering/Resolving]
  - Faecal calprotectin abnormal [Recovering/Resolving]
  - Throat tightness [Unknown]
  - Chills [Unknown]
  - Rash erythematous [Unknown]
  - Nausea [Unknown]
